FAERS Safety Report 17315331 (Version 3)
Quarter: 2021Q2

REPORT INFORMATION
  Report Type: Spontaneous
  Country: US (occurrence: US)
  Receive Date: 20200124
  Receipt Date: 20210507
  Transmission Date: 20210716
  Serious: No
  Sender: FDA-Public Use
  Company Number: US-VERTEX PHARMACEUTICALS-2020-000843

PATIENT
  Age: 18 Year
  Sex: Male

DRUGS (10)
  1. BETHKIS [Concomitant]
     Active Substance: TOBRAMYCIN
  2. ZENPEP [Concomitant]
     Active Substance: PANCRELIPASE AMYLASE\PANCRELIPASE LIPASE\PANCRELIPASE PROTEASE
  3. TRIKAFTA [Suspect]
     Active Substance: ELEXACAFTOR\IVACAFTOR\TEZACAFTOR
     Indication: CYSTIC FIBROSIS
     Dosage: 2 TAB (ELEXACAFTOR 100MG/ TEZACAFTOR 50MG/ IVACAFTOR 75MG) AM; 1 TAB (IVACAFTOR 150MG) PM
     Route: 048
     Dates: start: 201912
  4. VITAMIN D3 [Concomitant]
     Active Substance: CHOLECALCIFEROL
  5. ADVAIR HFA [Concomitant]
     Active Substance: FLUTICASONE PROPIONATE\SALMETEROL XINAFOATE
  6. PROAIR HFA [Concomitant]
     Active Substance: ALBUTEROL SULFATE
  7. PREVACID [Concomitant]
     Active Substance: LANSOPRAZOLE
  8. VITAMIN B12 [HYDROXOCOBALAMIN] [Concomitant]
     Active Substance: HYDROXOCOBALAMIN
  9. ALBUTEROL [SALBUTAMOL] [Concomitant]
     Active Substance: ALBUTEROL
  10. PULMOZYME [Concomitant]
     Active Substance: DORNASE ALFA

REACTIONS (2)
  - Headache [Recovered/Resolved]
  - Productive cough [Not Recovered/Not Resolved]

NARRATIVE: CASE EVENT DATE: 201912
